FAERS Safety Report 20454420 (Version 1)
Quarter: 2022Q1

REPORT INFORMATION
  Report Type: Spontaneous
  Country: US (occurrence: None)
  Receive Date: 20220209
  Receipt Date: 20220209
  Transmission Date: 20220424
  Serious: No
  Sender: FDA-Public Use
  Company Number: None

PATIENT
  Age: 38 Year
  Sex: Male
  Weight: 72.57 kg

DRUGS (1)
  1. CHANTIX [Suspect]
     Active Substance: VARENICLINE TARTRATE
     Dosage: FREQUENCY : TWICE A DAY;?
     Route: 048
     Dates: start: 20210301, end: 20220126

REACTIONS (2)
  - Recalled product administered [None]
  - Therapy cessation [None]

NARRATIVE: CASE EVENT DATE: 20210315
